FAERS Safety Report 6363190-X (Version None)
Quarter: 2009Q3

REPORT INFORMATION
  Report Type: 
  Country: None (occurrence: None)
  Receive Date: 20090919
  Receipt Date: 20090615
  Transmission Date: 20100115
  Serious: No
  Sender: FDA-Public Use
  Company Number: US-ABBOTT-09P-163-0580497-00

PATIENT
  Sex: Female
  Weight: 54.48 kg

DRUGS (1)
  1. HUMIRA [Suspect]
     Indication: ANKYLOSING SPONDYLITIS
     Route: 058
     Dates: start: 20090301

REACTIONS (3)
  - ANKYLOSING SPONDYLITIS [None]
  - DRUG DOSE OMISSION [None]
  - INJECTION SITE PAIN [None]
